FAERS Safety Report 22743286 (Version 5)
Quarter: 2024Q1

REPORT INFORMATION
  Report Type: Report from Study
  Country: US (occurrence: US)
  Receive Date: 20230724
  Receipt Date: 20240119
  Transmission Date: 20240409
  Serious: Yes (Hospitalization, Other)
  Sender: FDA-Public Use
  Company Number: US-BAYER-2023A074999

PATIENT
  Age: 70 Year
  Sex: Female

DRUGS (1)
  1. RIOCIGUAT [Suspect]
     Active Substance: RIOCIGUAT
     Indication: Pulmonary arterial hypertension
     Dosage: 0.5 MG, TID

REACTIONS (4)
  - Syncope [Recovered/Resolved]
  - Syncope [Recovered/Resolved]
  - Haematemesis [Recovered/Resolved]
  - Loss of consciousness [None]

NARRATIVE: CASE EVENT DATE: 20230523
